FAERS Safety Report 7295381-8 (Version None)
Quarter: 2011Q1

REPORT INFORMATION
  Report Type: 
  Country: None (occurrence: None)
  Receive Date: 20110216
  Receipt Date: 20110203
  Transmission Date: 20110831
  Serious: No
  Sender: FDA-Public Use
  Company Number: US-ABBOTT-11P-163-0702426-00

PATIENT
  Sex: Male
  Weight: 104.42 kg

DRUGS (6)
  1. MVT [Concomitant]
     Indication: PRODUCT USED FOR UNKNOWN INDICATION
  2. FLONASE [Concomitant]
     Indication: PRODUCT USED FOR UNKNOWN INDICATION
  3. ZYRTEC [Concomitant]
     Indication: PRODUCT USED FOR UNKNOWN INDICATION
  4. ASPIRIN [Concomitant]
     Indication: PRODUCT USED FOR UNKNOWN INDICATION
  5. ASCORBIC ACID [Concomitant]
     Indication: PRODUCT USED FOR UNKNOWN INDICATION
  6. SIMCOR [Suspect]
     Indication: BLOOD CHOLESTEROL INCREASED
     Dosage: 500/PATIENT UNSURE OF  SIMVASTATIN DOSE
     Dates: start: 20100901

REACTIONS (4)
  - FLUSHING [None]
  - FEELING HOT [None]
  - MUSCULOSKELETAL DISCOMFORT [None]
  - HYPERHIDROSIS [None]
